FAERS Safety Report 16650926 (Version 2)
Quarter: 2019Q3

REPORT INFORMATION
  Report Type: Spontaneous
  Country: US (occurrence: US)
  Receive Date: 20190731
  Receipt Date: 20190829
  Transmission Date: 20191004
  Serious: No
  Sender: FDA-Public Use
  Company Number: US-ASTRAZENECA-2019SE98287

PATIENT
  Sex: Female

DRUGS (1)
  1. SYMBICORT [Suspect]
     Active Substance: BUDESONIDE\FORMOTEROL FUMARATE DIHYDRATE
     Dosage: SYMBICORT 160/4.5 MCG 120 INHALATION, UNKOWN UNKNOWN
     Route: 055

REACTIONS (5)
  - Wrong technique in device usage process [Unknown]
  - Intentional device misuse [Unknown]
  - Product use issue [Unknown]
  - Device defective [Unknown]
  - Incorrect dose administered [Unknown]
